FAERS Safety Report 9300766 (Version 2)
Quarter: 2013Q2

REPORT INFORMATION
  Report Type: Report from Study
  Country: US (occurrence: US)
  Receive Date: 20130521
  Receipt Date: 20130530
  Transmission Date: 20140414
  Serious: Yes (Hospitalization)
  Sender: FDA-Public Use
  Company Number: US-ACTELION-A-NJ2013-80975

PATIENT
  Age: 15 Year
  Sex: Male

DRUGS (5)
  1. TRACLEER [Suspect]
     Indication: PULMONARY ARTERIAL HYPERTENSION
     Dosage: UNK
     Route: 048
     Dates: start: 2012
  2. TRACLEER [Suspect]
     Dosage: 62.5 MG, BID
     Route: 048
  3. SILDENAFIL [Concomitant]
     Dosage: UNK
  4. ADCIRCA [Concomitant]
     Dosage: 20 MG, QD
  5. REMODULIN [Concomitant]
     Dosage: 24 NG/KG, PER MIN

REACTIONS (4)
  - Device related infection [Not Recovered/Not Resolved]
  - Pyrexia [Not Recovered/Not Resolved]
  - Infusion site pruritus [Unknown]
  - Infusion site erythema [Unknown]
